FAERS Safety Report 24683055 (Version 3)
Quarter: 2025Q1

REPORT INFORMATION
  Report Type: Spontaneous
  Country: US (occurrence: US)
  Receive Date: 20241201
  Receipt Date: 20250115
  Transmission Date: 20250409
  Serious: No
  Sender: ALEXION PHARMACEUTICALS
  Company Number: US-AstraZeneca-CH-00755331AP

PATIENT
  Age: 70 Year

DRUGS (4)
  1. BYDUREON BCISE [Suspect]
     Active Substance: EXENATIDE
     Route: 065
  2. BYDUREON BCISE [Suspect]
     Active Substance: EXENATIDE
     Route: 065
  3. BYDUREON BCISE [Suspect]
     Active Substance: EXENATIDE
     Route: 065
  4. BYDUREON BCISE [Suspect]
     Active Substance: EXENATIDE
     Route: 065

REACTIONS (13)
  - Memory impairment [Unknown]
  - Injection site haemorrhage [Unknown]
  - Injection site vesicles [Unknown]
  - Injection site nerve damage [Unknown]
  - Injection site pain [Unknown]
  - Multiple use of single-use product [Unknown]
  - Incorrect dose administered by device [Unknown]
  - Drug delivery system issue [Unknown]
  - Injection site paraesthesia [Unknown]
  - Device delivery system issue [Unknown]
  - Headache [Unknown]
  - Device mechanical issue [Unknown]
  - Device delivery system issue [Unknown]
